FAERS Safety Report 17307743 (Version 3)
Quarter: 2020Q4

REPORT INFORMATION
  Report Type: Report from Study
  Country: FR (occurrence: FR)
  Receive Date: 20200123
  Receipt Date: 20201125
  Transmission Date: 20210113
  Serious: Yes (Death, Hospitalization, Other)
  Sender: FDA-Public Use
  Company Number: FR-SHIRE-FR202002460

PATIENT
  Sex: Male

DRUGS (2)
  1. IDURSULFASE [Suspect]
     Active Substance: IDURSULFASE
     Indication: MUCOPOLYSACCHARIDOSIS II
     Dosage: 0.67 MILLIGRAM/KILOGRAM, 1X/WEEK
     Route: 042
     Dates: start: 20090504
  2. IDURSULFASE [Suspect]
     Active Substance: IDURSULFASE
     Dosage: 0.57 MILLIGRAM/KILOGRAM, 1X/WEEK
     Route: 042
     Dates: start: 20130418, end: 20191204

REACTIONS (4)
  - Sepsis [Fatal]
  - Encephalitis [Unknown]
  - Staphylococcal sepsis [Fatal]
  - Meningitis staphylococcal [Fatal]

NARRATIVE: CASE EVENT DATE: 20191124
